FAERS Safety Report 11740322 (Version 2)
Quarter: 2015Q4

REPORT INFORMATION
  Report Type: Spontaneous
  Country: US (occurrence: US)
  Receive Date: 20151110
  Receipt Date: 20151120
  Transmission Date: 20160304
  Serious: No
  Sender: FDA-Public Use
  Company Number: US-ELI_LILLY_AND_COMPANY-US201207007970

PATIENT
  Age: 78 Year
  Sex: Female

DRUGS (4)
  1. FORTEO [Suspect]
     Active Substance: TERIPARATIDE
     Dosage: 20 UG, QD
  2. PREDNISONE. [Concomitant]
     Active Substance: PREDNISONE
  3. FORTEO [Suspect]
     Active Substance: TERIPARATIDE
     Indication: OSTEOPOROSIS
     Dosage: 20 UG, QD
     Route: 065
  4. FORTEO [Suspect]
     Active Substance: TERIPARATIDE
     Dosage: 20 UG, QD
     Dates: start: 201212, end: 20130129

REACTIONS (9)
  - Feeling abnormal [Unknown]
  - Parathyroid disorder [Unknown]
  - Intentional product misuse [Unknown]
  - Rheumatoid arthritis [Unknown]
  - Oral candidiasis [Unknown]
  - Dyspepsia [Unknown]
  - Vomiting [Unknown]
  - Asthenia [Unknown]
  - Blood calcium increased [Unknown]

NARRATIVE: CASE EVENT DATE: 2012
